FAERS Safety Report 8901445 (Version 2)
Quarter: 2012Q4

REPORT INFORMATION
  Report Type: 
  Country: US (occurrence: US)
  Receive Date: 20121109
  Receipt Date: 20121206
  Transmission Date: 20130627
  Serious: Yes (Hospitalization)
  Sender: FDA-Public Use
  Company Number: US-JNJFOC-20121100566

PATIENT
  Sex: Female

DRUGS (5)
  1. REMICADE [Suspect]
     Indication: CROHN^S DISEASE
     Route: 042
     Dates: start: 2012
  2. ATACAND [Concomitant]
     Indication: BLOOD PRESSURE INCREASED
     Route: 065
  3. DEPAKOTE [Concomitant]
     Indication: DEPRESSION
     Route: 065
  4. PENTASA [Concomitant]
     Indication: CROHN^S DISEASE
     Route: 065
  5. IRON [Concomitant]
     Indication: ANAEMIA
     Route: 065

REACTIONS (2)
  - Abasia [Recovered/Resolved]
  - Speech disorder [Recovered/Resolved]
